FAERS Safety Report 5603554-2 (Version None)
Quarter: 2008Q1

REPORT INFORMATION
  Report Type: 
  Country: None (occurrence: None)
  Receive Date: 20080122
  Receipt Date: 20080107
  Transmission Date: 20080703
  Serious: Yes (Death)
  Sender: FDA-Public Use
  Company Number: ALK_00453_2007

PATIENT
  Sex: Male
  Weight: 85.2762 kg

DRUGS (2)
  1. VIVITROL [Suspect]
     Indication: ALCOHOLISM
     Dosage: (380 MG 1X/MONTH INTRAMUSCULAR)
     Route: 030
     Dates: start: 20070831, end: 20070927
  2. CLONAZEPAM [Concomitant]

REACTIONS (8)
  - AFFECTIVE DISORDER [None]
  - ALCOHOL USE [None]
  - BIPOLAR DISORDER [None]
  - COMPLETED SUICIDE [None]
  - FAMILY STRESS [None]
  - GUN SHOT WOUND [None]
  - STRESS AT WORK [None]
  - TREATMENT NONCOMPLIANCE [None]
